FAERS Safety Report 18321590 (Version 2)
Quarter: 2023Q1

REPORT INFORMATION
  Report Type: Spontaneous
  Country: US (occurrence: US)
  Receive Date: 20200929
  Receipt Date: 20230217
  Transmission Date: 20230418
  Serious: No
  Sender: FDA-Public Use
  Company Number: US-BION-008416

PATIENT

DRUGS (1)
  1. LORATADINE [Suspect]
     Active Substance: LORATADINE
     Indication: Skin disorder
     Dosage: STRENGTH: 10 MG

REACTIONS (1)
  - Drug effective for unapproved indication [Not Recovered/Not Resolved]
